FAERS Safety Report 10932268 (Version 5)
Quarter: 2015Q2

REPORT INFORMATION
  Report Type: Spontaneous
  Country: US (occurrence: None)
  Receive Date: 20150318
  Receipt Date: 20150601
  Transmission Date: 20150821
  Serious: Yes (Life-Threatening, Hospitalization, Other)
  Sender: FDA-Public Use
  Company Number: ADR-2015-00513

PATIENT
  Age: 52 Year
  Sex: Male

DRUGS (11)
  1. FENTANYL INTRATHECAL [Suspect]
     Active Substance: FENTANYL
  2. MORPHINE [Suspect]
     Active Substance: MORPHINE
  3. COMPOUNDED BACLOFEN INTRATHECAL [Suspect]
     Active Substance: BACLOFEN
     Indication: PAIN
  4. HYDROMORPHONE INTRATHECAL [Suspect]
     Active Substance: HYDROMORPHONE
  5. CLONIDINE. [Suspect]
     Active Substance: CLONIDINE
  6. VANEX [Suspect]
     Active Substance: GUAIFENESIN\PSEUDOEPHEDRINE HYDROCHLORIDE
  7. OXYCONTIN [Suspect]
     Active Substance: OXYCODONE HYDROCHLORIDE
  8. PRIALT [Suspect]
     Active Substance: ZICONOTIDE ACETATE
  9. BUPIVACAINE INTRATHECAL [Suspect]
     Active Substance: BUPIVACAINE
  10. UNKNOWN ORAL MEDICATION [Suspect]
     Active Substance: UNSPECIFIED INGREDIENT
  11. OXYCODONE [Suspect]
     Active Substance: OXYCODONE

REACTIONS (28)
  - Gait disturbance [None]
  - Tachycardia [None]
  - Wrong technique in drug usage process [None]
  - Therapeutic response decreased [None]
  - Unevaluable event [None]
  - Hyperhidrosis [None]
  - Underdose [None]
  - Mental status changes [None]
  - Complex regional pain syndrome [None]
  - Seizure [None]
  - Suicidal ideation [None]
  - Device issue [None]
  - Tinnitus [None]
  - Drug withdrawal syndrome [None]
  - Dysarthria [None]
  - Post procedural complication [None]
  - Pollakiuria [None]
  - Implant site bruising [None]
  - Device computer issue [None]
  - Pain in extremity [None]
  - Cold sweat [None]
  - Chills [None]
  - Neuropathy peripheral [None]
  - Nausea [None]
  - Fall [None]
  - Pain [None]
  - Overdose [None]
  - Diplopia [None]
